FAERS Safety Report 6771768-4 (Version None)
Quarter: 2010Q2

REPORT INFORMATION
  Report Type: 
  Country: None (occurrence: None)
  Receive Date: 20100616
  Receipt Date: 20090728
  Transmission Date: 20101027
  Serious: No
  Sender: FDA-Public Use
  Company Number: US-ASTRAZENECA-2009UW21399

PATIENT
  Age: 78 Year
  Sex: Female
  Weight: 68 kg

DRUGS (4)
  1. ATACAND [Suspect]
     Route: 048
  2. COLCHICINE [Concomitant]
  3. COENZYME Q10 [Concomitant]
  4. CALCIUM SUPPLEMENT [Concomitant]

REACTIONS (2)
  - GOUT [None]
  - HYPERHIDROSIS [None]
